FAERS Safety Report 17075916 (Version 2)
Quarter: 2019Q4

REPORT INFORMATION
  Report Type: Report from Study
  Country: RO (occurrence: RO)
  Receive Date: 20191126
  Receipt Date: 20191216
  Transmission Date: 20200122
  Serious: Yes (Death, Hospitalization, Other)
  Sender: FDA-Public Use
  Company Number: RO-GILEAD-2019-0439210

PATIENT
  Age: 72 Year
  Sex: Female

DRUGS (1)
  1. LEDIPASVIR/SOFOSBUVIR [Suspect]
     Active Substance: LEDIPASVIR\SOFOSBUVIR
     Indication: CHRONIC HEPATITIS C
     Dosage: 1 DOSAGE FORM, QD
     Route: 048
     Dates: start: 20190530, end: 20190821

REACTIONS (7)
  - Cardiac failure chronic [Fatal]
  - Respiratory failure [Unknown]
  - Chronic respiratory failure [Fatal]
  - Chronic obstructive pulmonary disease [Fatal]
  - Cardio-respiratory arrest [Fatal]
  - Atrial fibrillation [Fatal]
  - Angina pectoris [Unknown]

NARRATIVE: CASE EVENT DATE: 201910
